FAERS Safety Report 8837520 (Version 2)
Quarter: 2012Q4

REPORT INFORMATION
  Report Type: 
  Country: US (occurrence: US)
  Receive Date: 20121012
  Receipt Date: 20121105
  Transmission Date: 20130627
  Serious: No
  Sender: FDA-Public Use
  Company Number: US-PFIZER INC-2012253521

PATIENT
  Age: 76 Year
  Sex: Female
  Weight: 71.66 kg

DRUGS (2)
  1. LYRICA [Suspect]
     Indication: SHINGLES
     Dosage: 75 mg, 2x/day
     Route: 048
     Dates: start: 20120919
  2. LYRICA [Suspect]
     Dosage: 75 mg, 2x/day, alternate day
     Dates: start: 2012

REACTIONS (2)
  - Pain [Not Recovered/Not Resolved]
  - Dizziness [Recovered/Resolved]
